FAERS Safety Report 7205410-5 (Version None)
Quarter: 2010Q4

REPORT INFORMATION
  Report Type: 
  Country: None (occurrence: None)
  Receive Date: 20101231
  Receipt Date: 20101220
  Transmission Date: 20110411
  Serious: Yes (Other)
  Sender: FDA-Public Use
  Company Number: PHHY2010US67452

PATIENT
  Sex: Female

DRUGS (8)
  1. RECLAST [Suspect]
     Dosage: UNK
     Dates: start: 20091101
  2. VITAMIN B-12 [Concomitant]
  3. LIPITOR [Concomitant]
     Dosage: 80 MG, ONCE DAILY
  4. ZETIA [Concomitant]
  5. CELEBREX [Concomitant]
  6. BENAZEPRIL [Concomitant]
  7. HYDROCO/APAP 5-325 [Concomitant]
  8. POTASSIUM [Concomitant]

REACTIONS (2)
  - DRUG INEFFECTIVE [None]
  - SPINAL FRACTURE [None]
